FAERS Safety Report 25482736 (Version 1)
Quarter: 2025Q2

REPORT INFORMATION
  Report Type: Spontaneous
  Country: US (occurrence: US)
  Receive Date: 20250626
  Receipt Date: 20250626
  Transmission Date: 20250716
  Serious: No
  Sender: HIKMA
  Company Number: US-HIKMA PHARMACEUTICALS USA INC.-US-H14001-25-01481

PATIENT
  Age: 59 Year
  Sex: Female

DRUGS (1)
  1. BUPRENORPHINE AND NALOXONE [Suspect]
     Active Substance: BUPRENORPHINE HYDROCHLORIDE\NALOXONE HYDROCHLORIDE
     Indication: Product used for unknown indication
     Route: 065
     Dates: start: 2018

REACTIONS (9)
  - Tooth loss [Unknown]
  - Dental caries [Unknown]
  - Swelling [Unknown]
  - Pain [Not Recovered/Not Resolved]
  - Oral infection [Unknown]
  - Inflammation [Unknown]
  - Emotional distress [Unknown]
  - Dysmorphism [Unknown]
  - Tooth injury [Unknown]
